FAERS Safety Report 22228332 (Version 1)
Quarter: 2023Q2

REPORT INFORMATION
  Report Type: Spontaneous
  Country: US (occurrence: None)
  Receive Date: 20230418
  Receipt Date: 20230418
  Transmission Date: 20230721
  Serious: No
  Sender: FDA-Public Use
  Company Number: None

PATIENT
  Age: 67 Year
  Sex: Female
  Weight: 72 kg

DRUGS (1)
  1. CYCLOSPORINE [Suspect]
     Active Substance: CYCLOSPORINE
     Indication: Dry eye
     Dosage: 1 DROP EYEDROPS  EVERY 12 HOURS
     Route: 050
     Dates: start: 20230101, end: 20230402

REACTIONS (11)
  - Pharyngeal swelling [None]
  - Oropharyngeal pain [None]
  - Headache [None]
  - Sinus disorder [None]
  - Oral mucosal blistering [None]
  - Eye pruritus [None]
  - Eye irritation [None]
  - Dysgeusia [None]
  - Dysgeusia [None]
  - Therapy cessation [None]
  - Product substitution issue [None]

NARRATIVE: CASE EVENT DATE: 20230103
